FAERS Safety Report 7861583-2 (Version None)
Quarter: 2011Q4

REPORT INFORMATION
  Report Type: 
  Country: None (occurrence: None)
  Receive Date: 20111027
  Receipt Date: 20111027
  Transmission Date: 20120403
  Serious: Yes (Death)
  Sender: FDA-Public Use
  Company Number: US-JNJFOC-20111010139

PATIENT
  Age: 19 Year
  Sex: Female

DRUGS (2)
  1. TYLENOL-500 [Suspect]
     Indication: PRODUCT USED FOR UNKNOWN INDICATION
     Route: 048
  2. TYLENOL-500 [Suspect]
     Route: 048

REACTIONS (3)
  - VICTIM OF CRIME [None]
  - OVERDOSE [None]
  - LIVER INJURY [None]
